FAERS Safety Report 4912277-4 (Version None)
Quarter: 2006Q1

REPORT INFORMATION
  Report Type: 
  Country: None (occurrence: None)
  Receive Date: 20060215
  Receipt Date: 20051213
  Transmission Date: 20060701
  Serious: No
  Sender: FDA-Public Use
  Company Number: US-GLAXOSMITHKLINE-A0585717A

PATIENT
  Age: 29 Year
  Sex: Female

DRUGS (2)
  1. VALTREX [Suspect]
     Dosage: 500MG PER DAY
     Route: 048
     Dates: start: 20040701
  2. SEASONALE [Concomitant]

REACTIONS (3)
  - DRUG INEFFECTIVE [None]
  - PARAESTHESIA [None]
  - PRURITUS GENITAL [None]
